FAERS Safety Report 6167588-4 (Version None)
Quarter: 2009Q2

REPORT INFORMATION
  Report Type: 
  Country: None (occurrence: None)
  Receive Date: 20090424
  Receipt Date: 20090326
  Transmission Date: 20091009
  Serious: No
  Sender: FDA-Public Use
  Company Number: US-BAYER-200813717BCC

PATIENT
  Age: 41 Year
  Sex: Female
  Weight: 58 kg

DRUGS (2)
  1. ALEVE (CAPLET) [Suspect]
     Indication: TOOTHACHE
     Dosage: TOTAL DAILY DOSE: 220 MG  UNIT DOSE: 220 MG
     Route: 048
     Dates: start: 20080909
  2. CIPROFLOXACIN HCL [Concomitant]

REACTIONS (5)
  - DYSPNOEA [None]
  - EYE IRRITATION [None]
  - FEELING HOT [None]
  - NERVOUSNESS [None]
  - OCULAR HYPERAEMIA [None]
